FAERS Safety Report 24050383 (Version 5)
Quarter: 2024Q3

REPORT INFORMATION
  Report Type: Spontaneous
  Country: US (occurrence: US)
  Receive Date: 20240704
  Receipt Date: 20240827
  Transmission Date: 20241017
  Serious: Yes (Hospitalization, Other)
  Sender: MIRUM PHARMACEUTICALS
  Company Number: US-MIRUM PHARMACEUTICALS, INC.-US-MIR-24-00545

PATIENT
  Age: 10 Month
  Sex: Female

DRUGS (1)
  1. CHOLBAM [Suspect]
     Active Substance: CHOLIC ACID
     Indication: Smith-Lemli-Opitz syndrome
     Dosage: OPEN 1X50 MG CAPSULE AND POUR CONTENTS INTO 10 ML FORMULA TO MAKE A 5 MG/ML SOLUTION. ADMINISTER 2.8
     Dates: start: 20240504

REACTIONS (8)
  - Hypoglycaemia [Recovered/Resolved]
  - Pneumonia [Recovered/Resolved]
  - Cough [Recovered/Resolved]
  - Nasal congestion [Recovered/Resolved]
  - Tachypnoea [Recovered/Resolved]
  - Vomiting [Recovered/Resolved]
  - Pyrexia [Recovered/Resolved]
  - Off label use [Unknown]

NARRATIVE: CASE EVENT DATE: 20240101
